FAERS Safety Report 8192729-7 (Version None)
Quarter: 2012Q1

REPORT INFORMATION
  Report Type: 
  Country: None (occurrence: None)
  Receive Date: 20120308
  Receipt Date: 20120304
  Transmission Date: 20120608
  Serious: No
  Sender: FDA-Public Use
  Company Number: US-PFIZER INC-2012057186

PATIENT
  Sex: Female
  Weight: 77.098 kg

DRUGS (2)
  1. POTASSIUM PENICILLIN G [Suspect]
     Indication: CHOLECYSTITIS INFECTIVE
     Dosage: UNK
  2. CODEINE SULFATE [Suspect]
     Indication: GALLBLADDER PAIN
     Dosage: UNK

REACTIONS (1)
  - DRUG HYPERSENSITIVITY [None]
